FAERS Safety Report 8591637-7 (Version None)
Quarter: 2012Q3

REPORT INFORMATION
  Report Type: 
  Country: None (occurrence: None)
  Receive Date: 20120814
  Receipt Date: 20120808
  Transmission Date: 20120928
  Serious: Yes (Hospitalization)
  Sender: FDA-Public Use
  Company Number: US-SANOFI-AVENTIS-2012SA039486

PATIENT
  Sex: Female

DRUGS (1)
  1. APIDRA [Suspect]
     Dosage: VIA PUMP
     Route: 058
     Dates: start: 20080101

REACTIONS (8)
  - KETOSIS [None]
  - URINARY TRACT INFECTION [None]
  - RASH [None]
  - DRUG INEFFECTIVE [None]
  - HYPERGLYCAEMIA [None]
  - HYPERSENSITIVITY [None]
  - DYSPNOEA [None]
  - HYPERGLYCAEMIC SEIZURE [None]
